FAERS Safety Report 5851067-5 (Version None)
Quarter: 2008Q3

REPORT INFORMATION
  Report Type: 
  Country: None (occurrence: None)
  Receive Date: 20080818
  Receipt Date: 20080801
  Transmission Date: 20090109
  Serious: Yes (Death)
  Sender: FDA-Public Use
  Company Number: 8035824

PATIENT
  Age: 53 Year
  Sex: Male

DRUGS (3)
  1. PREDNISOLONE [Suspect]
  2. RITUXIMAB [Suspect]
     Dosage: IV
     Route: 042
  3. METHOTREXATE SODIUM [Suspect]
     Dosage: 20 MG 1/W; SC
     Route: 058

REACTIONS (13)
  - ACINETOBACTER INFECTION [None]
  - ANOREXIA [None]
  - BLOOD LACTATE DEHYDROGENASE INCREASED [None]
  - BLOOD PRESSURE SYSTOLIC INCREASED [None]
  - DIZZINESS [None]
  - HEART RATE INCREASED [None]
  - HERPES SIMPLEX DNA TEST POSITIVE [None]
  - MULTI-ORGAN FAILURE [None]
  - OPPORTUNISTIC INFECTION [None]
  - OROPHARYNGEAL CANDIDIASIS [None]
  - PNEUMOCYSTIS JIROVECI PNEUMONIA [None]
  - RESPIRATORY FAILURE [None]
  - SEPSIS [None]
